FAERS Safety Report 8983655 (Version 2)
Quarter: 2013Q1

REPORT INFORMATION
  Report Type: Spontaneous
  Country: US (occurrence: US)
  Receive Date: 20121224
  Receipt Date: 20130308
  Transmission Date: 20140127
  Serious: No
  Sender: FDA-Public Use
  Company Number: US-BIOGENIDEC-2012BI062994

PATIENT
  Sex: Male

DRUGS (1)
  1. TYSABRI [Suspect]
     Indication: MULTIPLE SCLEROSIS
     Route: 042
     Dates: start: 20121105, end: 20130102

REACTIONS (5)
  - Toothache [Not Recovered/Not Resolved]
  - Visual impairment [Unknown]
  - Paraesthesia [Unknown]
  - Hypoaesthesia [Unknown]
  - Arthralgia [Unknown]
